FAERS Safety Report 9657593 (Version 1)
Quarter: 2013Q4

REPORT INFORMATION
  Report Type: Spontaneous
  Country: GB (occurrence: GB)
  Receive Date: 20131030
  Receipt Date: 20131030
  Transmission Date: 20140711
  Serious: Yes (Other)
  Sender: FDA-Public Use
  Company Number: GB-TEVA-440255ISR

PATIENT
  Age: 23 Year
  Sex: Male
  Weight: 60 kg

DRUGS (4)
  1. VENLAFAXINE [Suspect]
     Indication: ANXIETY
     Route: 048
     Dates: start: 20130801, end: 20131001
  2. LANSOPRAZOLE [Concomitant]
  3. CLONAZEPAM [Concomitant]
  4. PREGABALIN [Concomitant]

REACTIONS (3)
  - Constipation [Recovered/Resolved]
  - Lethargy [Recovered/Resolved]
  - Hypersomnia [Recovered/Resolved]
